FAERS Safety Report 9982211 (Version 1)
Quarter: 2014Q1

REPORT INFORMATION
  Report Type: Spontaneous
  Country: FR (occurrence: FR)
  Receive Date: 20140307
  Receipt Date: 20140307
  Transmission Date: 20141002
  Serious: Yes (Other)
  Sender: FDA-Public Use
  Company Number: PHHY2014FR026486

PATIENT
  Age: 63 Year
  Sex: Male

DRUGS (10)
  1. NISISCO [Suspect]
     Dosage: 1 DF (80 MG VALS/ 12.5 MG HYDR), DAILY
     Route: 048
     Dates: start: 2001
  2. SIMVASTATIN [Suspect]
     Dosage: 1 DF (20 MG), DAILY
     Route: 048
     Dates: start: 2001
  3. XARELTO [Suspect]
     Dosage: 1 DF (20 MG), DAILY
     Route: 048
     Dates: start: 20130808, end: 20130814
  4. CORDARONE [Suspect]
     Indication: ATRIAL FIBRILLATION
     Dosage: 1 DF (200 MG), DAILY FOR 5 DAYS IN A WEEK
     Route: 048
     Dates: start: 2007
  5. CORDARONE [Suspect]
     Dosage: 1 DF (200 MG), DAILY FOR 7 DAYS IN A WEEK
     Dates: start: 20130808
  6. MEDIATENSYL [Concomitant]
     Dosage: 2 DF (60 MG), DAILY
     Route: 048
     Dates: start: 2001
  7. HEMIDIGOXINE NATIVELLE [Suspect]
     Dosage: 1 DF (0.125), DAILY
     Route: 048
     Dates: start: 2007
  8. STAGID [Suspect]
     Dosage: 3 DF (700 MG), DAILY
     Route: 048
     Dates: start: 2010
  9. JANUVIA [Suspect]
     Dosage: 1 DF, DAILY
     Route: 048
     Dates: start: 2010
  10. KARDEGIC [Concomitant]
     Dosage: UNK UKN, UNK

REACTIONS (2)
  - Muscle rupture [Not Recovered/Not Resolved]
  - Pain in extremity [Unknown]
